FAERS Safety Report 16665205 (Version 1)
Quarter: 2019Q3

REPORT INFORMATION
  Report Type: Spontaneous
  Country: US (occurrence: US)
  Receive Date: 20190803
  Receipt Date: 20190803
  Transmission Date: 20191004
  Serious: Yes (Other)
  Sender: FDA-Public Use
  Company Number: US-ACCORD-113352

PATIENT
  Sex: Female

DRUGS (13)
  1. GABAPENTIN. [Concomitant]
     Active Substance: GABAPENTIN
  2. SULFADIAZINE. [Concomitant]
     Active Substance: SULFADIAZINE
  3. PRILOSEC [Concomitant]
     Active Substance: OMEPRAZOLE MAGNESIUM
  4. DOCETAXEL ACCORD [Suspect]
     Active Substance: DOCETAXEL
     Indication: BREAST CANCER
     Dates: start: 20141216, end: 20150611
  5. TAMOXIFEN [Concomitant]
     Active Substance: TAMOXIFEN
  6. ZYRTEC [Concomitant]
     Active Substance: CETIRIZINE HYDROCHLORIDE
     Dosage: STRENGTH: 10 MG
  7. DIFLUCAN [Concomitant]
     Active Substance: FLUCONAZOLE
  8. NYSTATIN/NYSTATIN/LIPOSOME [Concomitant]
  9. LORAZEPAM. [Concomitant]
     Active Substance: LORAZEPAM
  10. PROCHLORPERAZINE. [Concomitant]
     Active Substance: PROCHLORPERAZINE
  11. HYDROCODONE [Concomitant]
     Active Substance: HYDROCODONE
  12. PARACETAMOL [Concomitant]
     Active Substance: ACETAMINOPHEN
  13. VENLAFAXINE/VENLAFAXINE HYDROCHLORIDE [Concomitant]

REACTIONS (1)
  - Alopecia [Not Recovered/Not Resolved]
